FAERS Safety Report 4647542-1 (Version None)
Quarter: 2005Q2

REPORT INFORMATION
  Report Type: 
  Country: None (occurrence: None)
  Receive Date: 20050428
  Receipt Date: 20050418
  Transmission Date: 20051028
  Serious: Yes (Other)
  Sender: FDA-Public Use
  Company Number: JP-MERCK-0504USA03921

PATIENT
  Age: 46 Year
  Sex: Female

DRUGS (7)
  1. PEPCID [Suspect]
     Route: 042
     Dates: start: 20030306
  2. DEXAMETHASONE [Concomitant]
     Route: 042
     Dates: start: 20030306
  3. DIPHENHYDRAMINE HYDROCHLORIDE [Concomitant]
     Indication: PREMEDICATION
     Route: 048
     Dates: start: 20030306
  4. ONDANSETRON HYDROCHLORIDE [Concomitant]
     Route: 042
     Dates: start: 20030306
  5. CARBOPLATIN [Concomitant]
     Indication: OVARIAN CANCER METASTATIC
     Route: 051
     Dates: start: 20030306
  6. PACLITAXEL [Suspect]
     Indication: OVARIAN CANCER METASTATIC
     Route: 042
     Dates: start: 20030306
  7. PACLITAXEL [Suspect]
     Route: 042
     Dates: start: 20030408

REACTIONS (2)
  - LEUKOPENIA [None]
  - NEUROPATHY PERIPHERAL [None]
